FAERS Safety Report 6631206-9 (Version None)
Quarter: 2010Q1

REPORT INFORMATION
  Report Type: 
  Country: None (occurrence: None)
  Receive Date: 20100311
  Receipt Date: 20100308
  Transmission Date: 20100710
  Serious: Yes (Other)
  Sender: FDA-Public Use
  Company Number: US-ASTRAZENECA-2007UW17072

PATIENT
  Age: 40 Year
  Sex: Male
  Weight: 136.1 kg

DRUGS (37)
  1. SEROQUEL [Suspect]
     Indication: DEPRESSION
     Route: 048
     Dates: start: 20020101
  2. SEROQUEL [Suspect]
     Indication: BIPOLAR DISORDER
     Route: 048
     Dates: start: 20020101
  3. SEROQUEL [Suspect]
     Indication: MANIA
     Route: 048
     Dates: start: 20020101
  4. SEROQUEL [Suspect]
     Indication: PSYCHOTIC DISORDER
     Route: 048
     Dates: start: 20020101
  5. SEROQUEL [Suspect]
     Route: 048
     Dates: start: 19980801, end: 20050401
  6. SEROQUEL [Suspect]
     Route: 048
     Dates: start: 19980801, end: 20050401
  7. SEROQUEL [Suspect]
     Route: 048
     Dates: start: 19980801, end: 20050401
  8. SEROQUEL [Suspect]
     Route: 048
     Dates: start: 19980801, end: 20050401
  9. SEROQUEL [Suspect]
     Dosage: 100-200 MG
     Route: 048
     Dates: start: 20020416
  10. SEROQUEL [Suspect]
     Dosage: 100-200 MG
     Route: 048
     Dates: start: 20020416
  11. SEROQUEL [Suspect]
     Dosage: 100-200 MG
     Route: 048
     Dates: start: 20020416
  12. SEROQUEL [Suspect]
     Dosage: 100-200 MG
     Route: 048
     Dates: start: 20020416
  13. RISPERDAL [Suspect]
     Indication: DEPRESSION
     Dosage: 2-4 MG
     Dates: start: 19970806
  14. RISPERDAL [Suspect]
     Indication: BIPOLAR DISORDER
     Dosage: 2-4 MG
     Dates: start: 19970806
  15. RISPERDAL [Suspect]
     Indication: MANIA
     Dosage: 2-4 MG
     Dates: start: 19970806
  16. RISPERDAL [Suspect]
     Dates: start: 19980801, end: 20020401
  17. RISPERDAL [Suspect]
     Dates: start: 19980801, end: 20020401
  18. RISPERDAL [Suspect]
     Dates: start: 19980801, end: 20020401
  19. DEPAKOTE [Concomitant]
     Indication: PSYCHOTIC DISORDER
     Dosage: 500-1500 MG
     Dates: start: 19970921, end: 20050210
  20. WELLBUTRIN SR [Concomitant]
     Dates: start: 19970912
  21. EFFEXOR XR [Concomitant]
     Indication: PSYCHOTIC DISORDER
     Dates: start: 20020416, end: 20050422
  22. LEVOXYL [Concomitant]
     Indication: HYPOTHYROIDISM
     Dosage: 50-75 MCG
     Dates: start: 20011017
  23. NABUMETONE [Concomitant]
     Dates: start: 20011009
  24. BIAXIN XL [Concomitant]
     Dates: start: 20020628
  25. ALBUTEROL [Concomitant]
     Dates: start: 20020807
  26. BENZONATATE [Concomitant]
     Dates: start: 20020815
  27. AUGMENTIN [Concomitant]
     Dosage: 875-125 MG
     Dates: start: 19970510
  28. URSO 250 [Concomitant]
     Dosage: 250-750 MG
     Dates: start: 20021211
  29. HYDROCO/APAPS [Concomitant]
     Dosage: 5-500 MG
     Dates: start: 20030605
  30. GLYB/METFOR [Concomitant]
     Dosage: 1.25/25-2.5/50
     Dates: start: 20041214
  31. NEURONTIN [Concomitant]
     Indication: DIABETIC NEUROPATHY
     Dosage: 300-900 MG
     Dates: start: 20050210
  32. CEFACLOR [Concomitant]
     Dates: start: 20050713
  33. VIOXX [Concomitant]
     Dates: start: 20010602
  34. CARBAMAZEPINE [Concomitant]
     Dates: start: 20011009
  35. FUROSEMIDE [Concomitant]
     Dates: start: 20010412
  36. ABILIFY [Concomitant]
  37. COGENTIN [Concomitant]

REACTIONS (4)
  - DIABETES MELLITUS [None]
  - DIABETIC NEUROPATHY [None]
  - NEUROPATHY PERIPHERAL [None]
  - TYPE 2 DIABETES MELLITUS [None]
